FAERS Safety Report 17711747 (Version 1)
Quarter: 2020Q2

REPORT INFORMATION
  Report Type: Spontaneous
  Country: US (occurrence: US)
  Receive Date: 20200426
  Receipt Date: 20200426
  Transmission Date: 20200714
  Serious: No
  Sender: FDA-Public Use
  Company Number: None

PATIENT
  Age: 73 Year
  Sex: Female
  Weight: 62.1 kg

DRUGS (20)
  1. OMEPRAZOLE. [Concomitant]
     Active Substance: OMEPRAZOLE
  2. LOSARTAN. [Concomitant]
     Active Substance: LOSARTAN
  3. ATORVASTATIN [Concomitant]
     Active Substance: ATORVASTATIN
  4. METFORMIN [Concomitant]
     Active Substance: METFORMIN HYDROCHLORIDE
  5. VITAMIN C [Concomitant]
     Active Substance: ASCORBIC ACID
  6. BIOTIN [Concomitant]
     Active Substance: BIOTIN
  7. TRULICITY [Concomitant]
     Active Substance: DULAGLUTIDE
  8. MULTI VIT [Concomitant]
     Active Substance: VITAMINS
  9. COENZYME Q10 [Concomitant]
     Active Substance: UBIDECARENONE
  10. TIME-RELEASE B-12 [Concomitant]
  11. TRULICITY [Suspect]
     Active Substance: DULAGLUTIDE
     Indication: TYPE 2 DIABETES MELLITUS
     Dosage: ?          QUANTITY:1 INJECTION(S);OTHER FREQUENCY:PER WEEK;?
     Route: 058
  12. DULOXETINE. [Concomitant]
     Active Substance: DULOXETINE
  13. CINNAMON CAPSULE [Concomitant]
  14. VITAMIN C [Concomitant]
     Active Substance: ASCORBIC ACID
  15. PROBIOTICS [Concomitant]
     Active Substance: PROBIOTICS NOS
  16. CALCIUM [Concomitant]
     Active Substance: CALCIUM
  17. VASCEPA [Concomitant]
     Active Substance: ICOSAPENT ETHYL
  18. GENERIC LORATADINE [Concomitant]
  19. VIT D [Concomitant]
     Active Substance: VITAMIN D NOS
  20. COMBO MAGNESIUM [Concomitant]

REACTIONS (3)
  - Sleep disorder [None]
  - Injection site pruritus [None]
  - Injection site rash [None]

NARRATIVE: CASE EVENT DATE: 20200425
